FAERS Safety Report 6046088-6 (Version None)
Quarter: 2009Q1

REPORT INFORMATION
  Report Type: 
  Country: None (occurrence: None)
  Receive Date: 20090121
  Receipt Date: 20090121
  Transmission Date: 20090719
  Serious: Yes (Other)
  Sender: FDA-Public Use
  Company Number: None

PATIENT
  Sex: Female

DRUGS (1)
  1. CARDIZEM [Suspect]
     Indication: HYPERTENSION
     Dosage: 300 MG QD PO PRIOR TO 2003
     Route: 048

REACTIONS (3)
  - DRUG EFFECT DECREASED [None]
  - DRUG INTOLERANCE [None]
  - PRODUCT QUALITY ISSUE [None]
